FAERS Safety Report 7702776-4 (Version None)
Quarter: 2011Q3

REPORT INFORMATION
  Report Type: 
  Country: None (occurrence: None)
  Receive Date: 20110823
  Receipt Date: 20110812
  Transmission Date: 20111222
  Serious: Yes (Other)
  Sender: FDA-Public Use
  Company Number: US-BAYER-2011-003124

PATIENT
  Age: 19 Year
  Sex: Female

DRUGS (1)
  1. MIRENA [Suspect]
     Indication: CONTRACEPTION
     Dosage: 20 ?G, CONT
     Route: 015
     Dates: start: 20090814

REACTIONS (10)
  - METRORRHAGIA [None]
  - VAGINAL INFECTION [None]
  - VAGINAL HAEMORRHAGE [None]
  - CERVICAL DYSPLASIA [None]
  - DYSPAREUNIA [None]
  - VULVOVAGINAL PAIN [None]
  - BREAST PAIN [None]
  - POLYMENORRHOEA [None]
  - VAGINITIS BACTERIAL [None]
  - MEDICAL DEVICE COMPLICATION [None]
